FAERS Safety Report 18018554 (Version 1)
Quarter: 2020Q3

REPORT INFORMATION
  Report Type: Spontaneous
  Country: AT (occurrence: AT)
  Receive Date: 20200714
  Receipt Date: 20200714
  Transmission Date: 20201103
  Serious: Yes (Disabling, Other)
  Sender: FDA-Public Use
  Company Number: AT-TEVA-2020-AT-1799793

PATIENT
  Age: 77 Year
  Sex: Female

DRUGS (22)
  1. DIAZEPAM. [Suspect]
     Active Substance: DIAZEPAM
     Indication: DEMENTIA ALZHEIMER^S TYPE
     Dosage: 1 MILLIGRAM DAILY;
     Route: 065
     Dates: start: 201601
  2. QUETIAPINE. [Suspect]
     Active Substance: QUETIAPINE
     Indication: DEMENTIA ALZHEIMER^S TYPE
  3. DELTA?9?TETRAHYDROCANNABINOL [Suspect]
     Active Substance: DRONABINOL
     Indication: DEMENTIA ALZHEIMER^S TYPE
     Dosage: 0.833MG DRONABINOL/DROP. SHE TOOK 6 TO 8 DROPS OF DRONABINOL/DAY EQUIVALENT TO 4.9?6.7 MG DRONABI...
     Route: 065
     Dates: start: 201802
  4. RISPERIDONE. [Suspect]
     Active Substance: RISPERIDONE
     Dosage: 1 MILLIGRAM DAILY;
     Route: 065
     Dates: start: 2012
  5. SERTRALINE [Suspect]
     Active Substance: SERTRALINE HYDROCHLORIDE
     Indication: DEMENTIA ALZHEIMER^S TYPE
     Dosage: 50 MILLIGRAM DAILY;
     Route: 065
     Dates: start: 200808
  6. SERTRALINE [Suspect]
     Active Substance: SERTRALINE HYDROCHLORIDE
     Dosage: 100 MILLIGRAM DAILY;
     Route: 065
  7. RISPERIDONE. [Suspect]
     Active Substance: RISPERIDONE
     Dosage: .5 MILLIGRAM DAILY;
     Route: 065
     Dates: start: 2013
  8. ENALAPRIL [Concomitant]
     Active Substance: ENALAPRIL
     Indication: HYPERTENSION
     Dosage: 5 MILLIGRAM DAILY;
     Route: 065
  9. RISPERIDONE. [Suspect]
     Active Substance: RISPERIDONE
     Dosage: 2 MILLIGRAM DAILY;
     Route: 065
     Dates: start: 2016
  10. SERTRALINE [Suspect]
     Active Substance: SERTRALINE HYDROCHLORIDE
     Indication: DEMENTIA ALZHEIMER^S TYPE
     Dosage: 75 MILLIGRAM DAILY;
     Route: 065
  11. DIAZEPAM. [Suspect]
     Active Substance: DIAZEPAM
     Indication: DEMENTIA ALZHEIMER^S TYPE
  12. METFORMIN [Concomitant]
     Active Substance: METFORMIN HYDROCHLORIDE
     Indication: TYPE 2 DIABETES MELLITUS
     Dosage: 100 MILLIGRAM DAILY;
     Route: 065
  13. VITAMIN D3 [Concomitant]
     Active Substance: CHOLECALCIFEROL
     Indication: OSTEOPOROSIS PROPHYLAXIS
     Dosage: 15 DROPS PER WEEK
     Route: 048
  14. RISPERIDONE. [Suspect]
     Active Substance: RISPERIDONE
     Indication: DEMENTIA ALZHEIMER^S TYPE
     Dosage: 2 MILLIGRAM DAILY;
     Route: 065
     Dates: start: 2009
  15. QUETIAPINE. [Suspect]
     Active Substance: QUETIAPINE
     Indication: DEMENTIA ALZHEIMER^S TYPE
     Dosage: 25 MILLIGRAM DAILY;
     Route: 065
     Dates: start: 201601
  16. DELTA?9?TETRAHYDROCANNABINOL [Suspect]
     Active Substance: DRONABINOL
     Indication: DEMENTIA ALZHEIMER^S TYPE
  17. DONEPEZIL. [Suspect]
     Active Substance: DONEPEZIL
     Indication: DEMENTIA ALZHEIMER^S TYPE
     Dosage: 5 MILLIGRAM DAILY;
     Route: 065
     Dates: start: 2008
  18. DONEPEZIL. [Suspect]
     Active Substance: DONEPEZIL
     Indication: DEMENTIA ALZHEIMER^S TYPE
     Dosage: 10 MILLIGRAM DAILY;
     Route: 065
     Dates: start: 2008
  19. MEMANTINE. [Suspect]
     Active Substance: MEMANTINE
     Indication: DEMENTIA ALZHEIMER^S TYPE
     Dosage: 20 MILLIGRAM DAILY;
     Route: 065
     Dates: start: 201002
  20. RISPERIDONE. [Suspect]
     Active Substance: RISPERIDONE
     Indication: DEMENTIA ALZHEIMER^S TYPE
     Dosage: 3 MILLIGRAM DAILY;
     Route: 065
     Dates: start: 2008
  21. RISPERIDONE. [Suspect]
     Active Substance: RISPERIDONE
     Dosage: 1 MILLIGRAM DAILY;
     Route: 065
     Dates: start: 2015
  22. MEMANTINE. [Suspect]
     Active Substance: MEMANTINE
     Indication: DEMENTIA ALZHEIMER^S TYPE

REACTIONS (7)
  - Sedation [Recovering/Resolving]
  - Mobility decreased [Not Recovered/Not Resolved]
  - Pain [Unknown]
  - Aphasia [Not Recovered/Not Resolved]
  - Emotional disorder [Recovering/Resolving]
  - Quality of life decreased [Unknown]
  - Off label use [Unknown]
